FAERS Safety Report 9270046 (Version 1)
Quarter: 2013Q2

REPORT INFORMATION
  Report Type: Spontaneous
  Country: FR (occurrence: FR)
  Receive Date: 20130503
  Receipt Date: 20130503
  Transmission Date: 20140414
  Serious: Yes (Hospitalization, Other)
  Sender: FDA-Public Use
  Company Number: FR-ROXANE LABORATORIES, INC.-2012-EU-01100GD

PATIENT
  Age: 54 Year
  Sex: Male

DRUGS (6)
  1. PREDNISONE [Suspect]
     Indication: CROHN^S DISEASE
     Dosage: 1 MG/KG
  2. PREDNISONE [Suspect]
     Dosage: 0.5 MG/KG
     Dates: end: 20110305
  3. AZATHIOPRINE [Suspect]
     Indication: CROHN^S DISEASE
     Dosage: 100 MG
  4. ADALIMUMAB [Suspect]
     Indication: CROHN^S DISEASE
     Dosage: 160 MG
     Route: 058
     Dates: start: 20110223, end: 20110223
  5. ADALIMUMAB [Suspect]
     Dosage: 80 MG
     Route: 058
     Dates: start: 20110309, end: 20110309
  6. ADALIMUMAB [Suspect]
     Dosage: 40 MG
     Route: 058
     Dates: start: 20110323, end: 20110323

REACTIONS (10)
  - Pneumonia cryptococcal [Recovered/Resolved]
  - Pyrexia [Recovered/Resolved]
  - Decreased appetite [Unknown]
  - Cough [Unknown]
  - Chest pain [Recovered/Resolved]
  - Dyspnoea [Unknown]
  - Arthralgia [Unknown]
  - Myalgia [Unknown]
  - Glaucoma [Unknown]
  - Anxiety disorder [Unknown]
